FAERS Safety Report 8183672-8 (Version None)
Quarter: 2012Q1

REPORT INFORMATION
  Report Type: 
  Country: None (occurrence: None)
  Receive Date: 20120305
  Receipt Date: 20120224
  Transmission Date: 20120608
  Serious: Yes (Other)
  Sender: FDA-Public Use
  Company Number: PHHY2012BR016822

PATIENT
  Age: 49 Year
  Sex: Female

DRUGS (1)
  1. VOLTAREN [Suspect]
     Indication: CHILLS
     Dosage: 75 MG/3 ML

REACTIONS (6)
  - DRUG ADMINISTRATION ERROR [None]
  - MUSCLE SPASMS [None]
  - DYSSTASIA [None]
  - PERIPHERAL NERVE INJURY [None]
  - PAIN IN EXTREMITY [None]
  - DRUG INEFFECTIVE [None]
